FAERS Safety Report 8610695-4 (Version None)
Quarter: 2012Q3

REPORT INFORMATION
  Report Type: 
  Country: None (occurrence: None)
  Receive Date: 20120822
  Receipt Date: 20120810
  Transmission Date: 20120928
  Serious: Yes (Hospitalization)
  Sender: FDA-Public Use
  Company Number: HR-NOVOPROD-358470

PATIENT
  Age: 76 Year
  Sex: Female
  Weight: 48 kg

DRUGS (5)
  1. FURSEMID                           /00032601/ [Concomitant]
     Indication: CARDIAC FAILURE
     Dosage: 40 MG, QD
     Route: 048
  2. ALLOPURINOL [Concomitant]
     Dosage: 100 MG, QD
     Route: 048
  3. JANUMET [Suspect]
     Indication: TYPE 2 DIABETES MELLITUS
     Dosage: 2 TAB, QD
     Route: 048
     Dates: start: 20120528
  4. LANITOP [Concomitant]
     Indication: CARDIAC FAILURE
     Dosage: 0.1 MG, QD
     Route: 048
  5. REPAGLINIDE [Suspect]
     Indication: TYPE 2 DIABETES MELLITUS
     Dosage: 0.5 MG, BID
     Route: 048
     Dates: start: 20120615

REACTIONS (1)
  - IDIOPATHIC THROMBOCYTOPENIC PURPURA [None]
